FAERS Safety Report 19204996 (Version 1)
Quarter: 2021Q2

REPORT INFORMATION
  Report Type: Spontaneous
  Country: US (occurrence: US)
  Receive Date: 20210430
  Receipt Date: 20210430
  Transmission Date: 20210717
  Serious: Yes (Hospitalization)
  Sender: FDA-Public Use
  Company Number: None

PATIENT
  Age: 60 Year
  Sex: Female

DRUGS (1)
  1. AUBAGIO [Suspect]
     Active Substance: TERIFLUNOMIDE
     Route: 048
     Dates: start: 202103

REACTIONS (5)
  - Fall [None]
  - Spinal fracture [None]
  - Diarrhoea [None]
  - Electrolyte imbalance [None]
  - Dizziness [None]

NARRATIVE: CASE EVENT DATE: 20210405
